FAERS Safety Report 24305960 (Version 1)
Quarter: 2024Q3

REPORT INFORMATION
  Report Type: Spontaneous
  Country: US (occurrence: US)
  Receive Date: 20240911
  Receipt Date: 20240911
  Transmission Date: 20241017
  Serious: No
  Sender: ALVOGEN
  Company Number: US-ALVOGEN-2023092061

PATIENT

DRUGS (1)
  1. GABAPENTIN [Suspect]
     Active Substance: GABAPENTIN
     Indication: Product used for unknown indication

REACTIONS (6)
  - Drug hypersensitivity [Unknown]
  - Brain fog [Unknown]
  - Agitation [Unknown]
  - Tremor [Unknown]
  - Blood pressure increased [Unknown]
  - Confusional state [Unknown]

NARRATIVE: CASE EVENT DATE: 20120921
